FAERS Safety Report 25404988 (Version 1)
Quarter: 2025Q2

REPORT INFORMATION
  Report Type: Spontaneous
  Country: BR (occurrence: BR)
  Receive Date: 20250606
  Receipt Date: 20250606
  Transmission Date: 20250717
  Serious: Yes (Other)
  Sender: RANBAXY
  Company Number: BR-SUN PHARMACEUTICAL INDUSTRIES LTD-2025R1-510195

PATIENT
  Age: 42 Year
  Sex: Male

DRUGS (5)
  1. BRIMONIDINE [Suspect]
     Active Substance: BRIMONIDINE TARTRATE
     Indication: Eye pain
     Route: 065
  2. MANNITOL [Suspect]
     Active Substance: MANNITOL
     Indication: Eye pain
     Route: 042
  3. ACETAZOLAMIDE [Suspect]
     Active Substance: ACETAZOLAMIDE
     Indication: Eye pain
     Route: 048
  4. PILOCARPINE [Suspect]
     Active Substance: PILOCARPINE
     Indication: Eye pain
     Dosage: 2% , TWICE A DAY
     Route: 065
  5. LATANOPROST\TIMOLOL [Suspect]
     Active Substance: LATANOPROST\TIMOLOL
     Indication: Eye pain
     Route: 065

REACTIONS (1)
  - Therapy non-responder [Unknown]
